FAERS Safety Report 9539048 (Version 2)
Quarter: 2013Q4

REPORT INFORMATION
  Report Type: Spontaneous
  Country: JP (occurrence: JP)
  Receive Date: 20130920
  Receipt Date: 20131008
  Transmission Date: 20140711
  Serious: Yes (Other)
  Sender: FDA-Public Use
  Company Number: JP-NAPPMUNDI-GBR-2013-0015694

PATIENT
  Age: 73 Year
  Sex: Female

DRUGS (1)
  1. OXYCODONE HCL PR TABLET 10 MG [Suspect]
     Indication: CANCER PAIN
     Dosage: 10 MG, SINGLE
     Route: 048
     Dates: start: 20130805, end: 20130805

REACTIONS (1)
  - Delirium [Unknown]
